FAERS Safety Report 7510027-9 (Version None)
Quarter: 2011Q2

REPORT INFORMATION
  Report Type: 
  Country: None (occurrence: None)
  Receive Date: 20110527
  Receipt Date: 20110516
  Transmission Date: 20111010
  Serious: Yes (Hospitalization)
  Sender: FDA-Public Use
  Company Number: US-MYLANLABS-2011S1010149

PATIENT
  Age: 75 Year
  Sex: Female

DRUGS (4)
  1. NATEGLINIDE [Suspect]
     Route: 065
  2. GLIPIZIDE [Suspect]
     Route: 065
  3. METFORMIN HCL [Suspect]
     Route: 065
  4. COTRIM [Suspect]
     Indication: OSTEOMYELITIS
     Route: 065

REACTIONS (2)
  - HYPOGLYCAEMIC SEIZURE [None]
  - HYPOGLYCAEMIA [None]
